FAERS Safety Report 7421581-X (Version None)
Quarter: 2011Q2

REPORT INFORMATION
  Report Type: 
  Country: None (occurrence: None)
  Receive Date: 20110418
  Receipt Date: 20110406
  Transmission Date: 20111010
  Serious: Yes (Hospitalization)
  Sender: FDA-Public Use
  Company Number: FR-BRISTOL-MYERS SQUIBB COMPANY-15661218

PATIENT
  Age: 50 Year
  Sex: Male

DRUGS (13)
  1. REYATAZ [Suspect]
     Indication: ACQUIRED IMMUNODEFICIENCY SYNDROME
     Dates: start: 20060331, end: 20110107
  2. CYMEVAN [Suspect]
     Indication: HUMAN HERPESVIRUS 6 INFECTION
  3. ISENTRESS [Suspect]
     Indication: ACQUIRED IMMUNODEFICIENCY SYNDROME
     Dates: start: 20101119, end: 20110107
  4. RIFAMPICIN [Suspect]
  5. LOVENOX [Suspect]
     Dates: start: 20100801
  6. INTELENCE [Suspect]
     Indication: ACQUIRED IMMUNODEFICIENCY SYNDROME
     Dates: start: 20101217, end: 20110107
  7. BACTRIM [Suspect]
     Dates: start: 20000101
  8. RIMIFON [Suspect]
     Dates: start: 20100801
  9. TRUVADA [Suspect]
     Indication: ACQUIRED IMMUNODEFICIENCY SYNDROME
     Dates: start: 20101119, end: 20110107
  10. ABACAVIR [Suspect]
  11. PYRAZINAMIDE [Suspect]
  12. FOLIC ACID [Concomitant]
     Dates: start: 20100801
  13. CYMEVAN [Suspect]
     Indication: CYTOMEGALOVIRUS INFECTION

REACTIONS (6)
  - MYCOBACTERIUM TEST POSITIVE [None]
  - DYSPEPSIA [None]
  - DRUG RASH WITH EOSINOPHILIA AND SYSTEMIC SYMPTOMS [None]
  - LUNG DISORDER [None]
  - ANGIOEDEMA [None]
  - BLOOD CREATININE INCREASED [None]
